FAERS Safety Report 24548486 (Version 1)
Quarter: 2024Q4

REPORT INFORMATION
  Report Type: Spontaneous
  Country: US (occurrence: None)
  Receive Date: 20241023
  Receipt Date: 20241023
  Transmission Date: 20250115
  Serious: Yes (unspecified)
  Sender: Public
  Company Number: None

PATIENT
  Age: 73 Year
  Sex: Male
  Weight: 83 kg

DRUGS (1)
  1. ATORVASTATIN CALCIUM [Suspect]
     Active Substance: ATORVASTATIN CALCIUM
     Indication: Hyperlipidaemia
     Dosage: FREQUENCY : DAILY;?
     Route: 048

REACTIONS (5)
  - Fall [None]
  - Gait disturbance [None]
  - Muscular weakness [None]
  - Necrotising myositis [None]
  - Arthralgia [None]

NARRATIVE: CASE EVENT DATE: 20240510
